FAERS Safety Report 9414760 (Version 2)
Quarter: 2013Q3

REPORT INFORMATION
  Report Type: Spontaneous
  Country: IN (occurrence: IN)
  Receive Date: 20130723
  Receipt Date: 20130729
  Transmission Date: 20140515
  Serious: Yes (Other)
  Sender: FDA-Public Use
  Company Number: IN-PFIZER INC-2013213587

PATIENT
  Age: 46 Year
  Sex: Male

DRUGS (4)
  1. FLUOXETINE HCL [Suspect]
     Indication: BACK PAIN
     Dosage: 40 MG, 1X/DAY
     Route: 065
  2. ONDANSETRON [Suspect]
     Indication: NAUSEA
     Dosage: 8 MG, 2X/DAY
     Route: 065
  3. ONDANSETRON [Suspect]
     Indication: VOMITING
  4. ULTRACET [Suspect]
     Indication: BACK PAIN
     Dosage: 37.5/325
     Route: 065

REACTIONS (13)
  - Off label use [Recovered/Resolved]
  - Serotonin syndrome [Recovered/Resolved]
  - Nausea [Recovered/Resolved]
  - Vomiting [Recovered/Resolved]
  - Headache [Recovered/Resolved]
  - Restlessness [Recovered/Resolved]
  - Sleep disorder [Recovered/Resolved]
  - Tachycardia [Recovered/Resolved]
  - Body temperature increased [Recovered/Resolved]
  - Mydriasis [Recovered/Resolved]
  - Clonus [Recovered/Resolved]
  - Postural tremor [Recovered/Resolved]
  - Muscle rigidity [Recovered/Resolved]
